FAERS Safety Report 24073521 (Version 1)
Quarter: 2024Q3

REPORT INFORMATION
  Report Type: Spontaneous
  Country: JP (occurrence: JP)
  Receive Date: 20240710
  Receipt Date: 20240710
  Transmission Date: 20241016
  Serious: Yes (Hospitalization, Other)
  Sender: MERCK
  Company Number: JP-MSD-M2024-17786

PATIENT
  Age: 67 Year
  Sex: Male

DRUGS (6)
  1. KEYTRUDA [Suspect]
     Active Substance: PEMBROLIZUMAB
     Indication: Hypopharyngeal cancer stage IV
     Dosage: UNK UNK, Q3W
     Route: 041
     Dates: start: 20230623, end: 2023
  2. KEYTRUDA [Suspect]
     Active Substance: PEMBROLIZUMAB
     Indication: PD-L1 positive cancer
     Dosage: 400 MILLIGRAM, EVERY 6 WEEKS
     Route: 041
     Dates: start: 2023, end: 20240110
  3. FLUOROURACIL [Concomitant]
     Active Substance: FLUOROURACIL
     Indication: Hypopharyngeal cancer stage IV
     Dosage: 1000 MILLIGRAM/SQ. METER
     Route: 041
     Dates: start: 20230623, end: 20231108
  4. FLUOROURACIL [Concomitant]
     Active Substance: FLUOROURACIL
     Indication: PD-L1 positive cancer
  5. CISPLATIN [Concomitant]
     Active Substance: CISPLATIN
     Indication: Hypopharyngeal cancer stage IV
     Dosage: 100 MILLIGRAM/SQ. METER
     Route: 041
     Dates: start: 20230623, end: 20231108
  6. CISPLATIN [Concomitant]
     Active Substance: CISPLATIN
     Indication: PD-L1 positive cancer

REACTIONS (1)
  - Immune-mediated hepatic disorder [Recovered/Resolved]

NARRATIVE: CASE EVENT DATE: 20240214
